FAERS Safety Report 9111196 (Version 1)
Quarter: 2013Q1

REPORT INFORMATION
  Report Type: Spontaneous
  Country: US (occurrence: US)
  Receive Date: 20130219
  Receipt Date: 20130219
  Transmission Date: 20140127
  Serious: No
  Sender: FDA-Public Use
  Company Number: US-BRISTOL-MYERS SQUIBB COMPANY-16431504

PATIENT
  Age: 79 Year
  Sex: Male
  Weight: 88 kg

DRUGS (2)
  1. ORENCIA FOR INJ [Suspect]
     Indication: RHEUMATOID ARTHRITIS
     Dosage: LAST INF: 1MAR12. SCHEDULED: 15MAR12.
     Route: 042
     Dates: start: 20120216
  2. METHOTREXATE [Suspect]
     Dosage: GOING OFF FOR FIVE WEEKS AND VERY SOON WILL BE WITHDRAWN

REACTIONS (3)
  - Drug ineffective [Unknown]
  - Bacterial infection [Unknown]
  - Fungal infection [Unknown]
